FAERS Safety Report 6568018-0 (Version None)
Quarter: 2010Q1

REPORT INFORMATION
  Report Type: 
  Country: None (occurrence: None)
  Receive Date: 20100203
  Receipt Date: 20100125
  Transmission Date: 20100710
  Serious: Yes (Other)
  Sender: FDA-Public Use
  Company Number: DE-PFIZER INC-2010009457

PATIENT
  Sex: Female

DRUGS (1)
  1. AZULFIDINE [Suspect]
     Indication: ARTHRITIS
     Dosage: 2 G DAILY
     Route: 048
     Dates: start: 20090801, end: 20100101

REACTIONS (2)
  - PARAESTHESIA [None]
  - STOMATITIS [None]
